FAERS Safety Report 9414653 (Version 2)
Quarter: 2021Q3

REPORT INFORMATION
  Report Type: Report from Study
  Country: IT (occurrence: IT)
  Receive Date: 20130723
  Receipt Date: 20210816
  Transmission Date: 20211014
  Serious: Yes (Other)
  Sender: FDA-Public Use
  Company Number: IT-PFIZER INC-2013212066

PATIENT
  Age: 13 Year
  Sex: Male

DRUGS (2)
  1. CARBOPLATIN. [Suspect]
     Active Substance: CARBOPLATIN
     Indication: GLIOMA
     Dosage: 1320 MG/M2, (CUMULATIVE DOSE)
  2. DESMOPRESSIN [Concomitant]
     Active Substance: DESMOPRESSIN
     Indication: DIABETES INSIPIDUS
     Dosage: UNK

REACTIONS (3)
  - Haematotoxicity [Unknown]
  - Hypoacusis [Unknown]
  - Metabolic syndrome [Unknown]
